FAERS Safety Report 6893554-7 (Version None)
Quarter: 2010Q3

REPORT INFORMATION
  Report Type: 
  Country: None (occurrence: None)
  Receive Date: 20100731
  Receipt Date: 20091015
  Transmission Date: 20110219
  Serious: No
  Sender: FDA-Public Use
  Company Number: US-PFIZER INC-2009241337

PATIENT
  Sex: Female
  Weight: 70.8 kg

DRUGS (4)
  1. LIPITOR [Suspect]
     Indication: BLOOD CHOLESTEROL INCREASED
     Dosage: 10 MG, 1X/DAY
     Route: 048
     Dates: start: 20080306, end: 20090701
  2. SYNTHROID [Concomitant]
     Indication: HYPOTHYROIDISM
  3. TOPROL-XL [Concomitant]
     Indication: HYPERTENSION
  4. ZESTRIL [Concomitant]
     Indication: HYPERTENSION

REACTIONS (2)
  - MUSCLE SPASMS [None]
  - RESTLESS LEGS SYNDROME [None]
